FAERS Safety Report 21184589 (Version 1)
Quarter: 2022Q3

REPORT INFORMATION
  Report Type: Report from Study
  Country: US (occurrence: US)
  Receive Date: 20220808
  Receipt Date: 20220808
  Transmission Date: 20221027
  Serious: Yes (Hospitalization)
  Sender: FDA-Public Use
  Company Number: US-BEH-2022148125

PATIENT
  Age: 57 Year
  Sex: Female
  Weight: 79.365 kg

DRUGS (5)
  1. HIZENTRA [Suspect]
     Active Substance: HUMAN IMMUNOGLOBULIN G
     Indication: Primary immunodeficiency syndrome
     Dosage: UNK UNK, QOW
     Route: 058
     Dates: start: 2020
  2. MICAFUNGIN [Concomitant]
     Active Substance: MICAFUNGIN
     Dosage: UNK
     Route: 042
     Dates: start: 2017
  3. SODIUM CHLORIDE [Concomitant]
     Active Substance: SODIUM CHLORIDE
     Dosage: UNK, QD
     Route: 042
  4. XARELTO [Concomitant]
     Active Substance: RIVAROXABAN
     Indication: Coagulopathy
  5. XARELTO [Concomitant]
     Active Substance: RIVAROXABAN
     Indication: Coagulopathy

REACTIONS (7)
  - Sepsis [Unknown]
  - Fatigue [Unknown]
  - Headache [Unknown]
  - Influenza like illness [Unknown]
  - Illness [Unknown]
  - Loss of employment [Unknown]
  - Disability [Unknown]
